FAERS Safety Report 9520355 (Version 1)
Quarter: 2013Q3

REPORT INFORMATION
  Report Type: Spontaneous
  Country: DE (occurrence: DE)
  Receive Date: 20130912
  Receipt Date: 20130912
  Transmission Date: 20140515
  Serious: Yes (Hospitalization)
  Sender: FDA-Public Use
  Company Number: DE-ABBOTT-13P-062-1144419-00

PATIENT
  Age: 33 Year
  Sex: Female
  Weight: 49 kg

DRUGS (5)
  1. HUMIRA [Suspect]
     Indication: CROHN^S DISEASE
     Route: 058
     Dates: start: 20090326
  2. PREDNISOLON [Concomitant]
     Indication: PRODUCT USED FOR UNKNOWN INDICATION
     Route: 048
  3. FUCICORT [Concomitant]
     Indication: PRODUCT USED FOR UNKNOWN INDICATION
  4. TRAMABETA [Concomitant]
     Indication: PRODUCT USED FOR UNKNOWN INDICATION
  5. SUMATRIPTAN [Concomitant]
     Indication: PRODUCT USED FOR UNKNOWN INDICATION
     Route: 048

REACTIONS (2)
  - Anal fistula [Recovering/Resolving]
  - Pulmonary embolism [Recovered/Resolved]
